FAERS Safety Report 5418120-1 (Version None)
Quarter: 2007Q3

REPORT INFORMATION
  Report Type: 
  Country: None (occurrence: None)
  Receive Date: 20070817
  Receipt Date: 20070815
  Transmission Date: 20080115
  Serious: Yes (Life-Threatening, Hospitalization, Other)
  Sender: FDA-Public Use
  Company Number: GB-BRISTOL-MYERS SQUIBB COMPANY-13799820

PATIENT
  Age: 68 Year
  Sex: Male
  Weight: 92 kg

DRUGS (5)
  1. SINEMET [Suspect]
     Indication: PARKINSON'S DISEASE
     Dosage: ORAL SINEMET PLUS (25MG CARBIDOPA/100 MG LEVODOPA) ONE TABLET 4 TIMES DAILY FROM NOV 2005 TO PRESENT
     Route: 048
     Dates: start: 20051101
  2. DOMPERIDONE [Concomitant]
     Indication: NAUSEA
     Route: 048
  3. CODEINE PHOSPHATE AND ACETAMINOPHEN [Concomitant]
     Route: 048
  4. REGULAN [Concomitant]
     Indication: CONSTIPATION
     Route: 048
  5. SINEMET CR [Suspect]
     Indication: PARKINSON'S DISEASE
     Route: 048
     Dates: start: 20061101

REACTIONS (2)
  - VENTRICULAR ARRHYTHMIA [None]
  - VENTRICULAR TACHYCARDIA [None]
